FAERS Safety Report 13717422 (Version 1)
Quarter: 2017Q3

REPORT INFORMATION
  Report Type: Report from Study
  Country: CN (occurrence: CN)
  Receive Date: 20170705
  Receipt Date: 20170705
  Transmission Date: 20171127
  Serious: Yes (Death)
  Sender: FDA-Public Use
  Company Number: CN-ROCHE-1958563

PATIENT

DRUGS (2)
  1. ALTEPLASE. [Suspect]
     Active Substance: ALTEPLASE
     Dosage: THE REMAINING 90% OF THE DOSE WAS DELIVERED VIA INTRAVENOUS DRIP WITHIN 1 HOUR
     Route: 041
  2. ALTEPLASE. [Suspect]
     Active Substance: ALTEPLASE
     Indication: ISCHAEMIC STROKE
     Dosage: 0.9 MG/KG (MAXIMUM DOSE WAS 90 MG), OF WHICH 10% WAS DELIVERED VIA INTRAVENOUS PUSH WITHIN 1 MINUTE
     Route: 040

REACTIONS (1)
  - Haemorrhage intracranial [Fatal]
